FAERS Safety Report 5242921-6 (Version None)
Quarter: 2007Q1

REPORT INFORMATION
  Report Type: 
  Country: None (occurrence: None)
  Receive Date: 20070221
  Receipt Date: 20070209
  Transmission Date: 20070707
  Serious: Yes (Hospitalization, Other)
  Sender: FDA-Public Use
  Company Number: JP-NOVOPROD-260441

PATIENT
  Age: 44 Year
  Sex: Male

DRUGS (6)
  1. INNOLET N CHU [Suspect]
     Indication: INSULIN-REQUIRING TYPE II DIABETES MELLITUS
     Route: 058
     Dates: start: 20031201
  2. INNOLET N CHU [Suspect]
  3. INNOLET R CHU [Suspect]
     Indication: INSULIN-REQUIRING TYPE II DIABETES MELLITUS
     Route: 058
     Dates: start: 20031201
  4. ASPARA K                           /00466902/ [Concomitant]
     Indication: CIRRHOSIS ALCOHOLIC
  5. ALDACTONE [Concomitant]
  6. PANVITAN [Concomitant]

REACTIONS (4)
  - BLOOD GLUCOSE FLUCTUATION [None]
  - CONVULSION [None]
  - DEPRESSED LEVEL OF CONSCIOUSNESS [None]
  - MUSCLE TIGHTNESS [None]
